FAERS Safety Report 9165074 (Version 2)
Quarter: 2013Q2

REPORT INFORMATION
  Report Type: Spontaneous
  Country: FI (occurrence: FI)
  Receive Date: 20130315
  Receipt Date: 20130423
  Transmission Date: 20140414
  Serious: Yes (Hospitalization, Other)
  Sender: FDA-Public Use
  Company Number: FI-JNJFOC-20130304605

PATIENT
  Age: 41 Year
  Sex: Male

DRUGS (4)
  1. RISPERDAL CONSTA [Suspect]
     Indication: PRODUCT USED FOR UNKNOWN INDICATION
     Route: 030
     Dates: start: 20091104
  2. RISPERDAL CONSTA [Suspect]
     Indication: PRODUCT USED FOR UNKNOWN INDICATION
     Route: 030
  3. ABILIFY [Suspect]
     Indication: DELUSION
     Route: 065
     Dates: start: 20100907
  4. ABILIFY [Suspect]
     Indication: DELUSION
     Route: 065

REACTIONS (6)
  - Blood thyroid stimulating hormone increased [Unknown]
  - Weight increased [Not Recovered/Not Resolved]
  - Treatment noncompliance [Unknown]
  - Blood cholesterol increased [Unknown]
  - Lipids increased [Unknown]
  - Ocular hyperaemia [Not Recovered/Not Resolved]
